FAERS Safety Report 5748778-9 (Version None)
Quarter: 2008Q2

REPORT INFORMATION
  Report Type: 
  Country: None (occurrence: None)
  Receive Date: 20080522
  Receipt Date: 20080505
  Transmission Date: 20081010
  Serious: Yes (Hospitalization)
  Sender: FDA-Public Use
  Company Number: 2008AL003410

PATIENT
  Age: 57 Year
  Sex: Female
  Weight: 69.8539 kg

DRUGS (7)
  1. DIGOXIN [Suspect]
  2. HYDRALAZINE 25MG DAILY PO [Concomitant]
  3. HYPERTENSION COREG 25MG DAILY BID PO [Concomitant]
  4. HEART RATE ISOSORBIDE 60MG DAILY PO [Concomitant]
  5. HEART IRON 325MG DAILY BID PO [Concomitant]
  6. ANAMIA NORVASC 5MG DAILY PO [Concomitant]
  7. HIGH BLOOD PRESSURE [Concomitant]

REACTIONS (5)
  - FAECAL INCONTINENCE [None]
  - HYPOTENSION [None]
  - MYOCARDIAL INFARCTION [None]
  - OVERDOSE [None]
  - URINARY INCONTINENCE [None]
